FAERS Safety Report 11640976 (Version 1)
Quarter: 2015Q4

REPORT INFORMATION
  Report Type: Spontaneous
  Country: US (occurrence: None)
  Receive Date: 20151016
  Receipt Date: 20151016
  Transmission Date: 20160304
  Serious: Yes (Other)
  Sender: FDA-Public Use
  Company Number: None

PATIENT
  Age: 46 Year
  Sex: Male
  Weight: 82.56 kg

DRUGS (1)
  1. DOCETAXEL 80MG SANOFI-AVENTIS [Suspect]
     Active Substance: DOCETAXEL
     Indication: NASOPHARYNGEAL CANCER
     Route: 042

REACTIONS (3)
  - Cardiac disorder [None]
  - Back pain [None]
  - Chills [None]

NARRATIVE: CASE EVENT DATE: 20151013
